FAERS Safety Report 8492069-2 (Version None)
Quarter: 2012Q3

REPORT INFORMATION
  Report Type: 
  Country: None (occurrence: None)
  Receive Date: 20120706
  Receipt Date: 20120703
  Transmission Date: 20120928
  Serious: Yes (Other)
  Sender: FDA-Public Use
  Company Number: JP-PFIZER INC-2012145435

PATIENT
  Age: 55 Year
  Sex: Female

DRUGS (2)
  1. LYRICA [Suspect]
     Indication: PAIN
     Dosage: 75 MG, 2X/DAY
     Route: 048
     Dates: start: 20120526, end: 20120531
  2. TELMISARTAN AND HYDROCHLOROTHIAZIDE [Concomitant]
     Dosage: UNK
     Route: 048
     Dates: start: 20110101

REACTIONS (1)
  - BLOOD PRESSURE INCREASED [None]
